FAERS Safety Report 18183734 (Version 2)
Quarter: 2020Q3

REPORT INFORMATION
  Report Type: Report from Study
  Country: GT (occurrence: GT)
  Receive Date: 20200822
  Receipt Date: 20200829
  Transmission Date: 20201103
  Serious: Yes (Death, Hospitalization)
  Sender: FDA-Public Use
  Company Number: NVSC2020GT232051

PATIENT
  Age: 65 Year
  Sex: Male

DRUGS (2)
  1. TRAYENTA [Concomitant]
     Active Substance: LINAGLIPTIN
     Indication: DIABETES MELLITUS
     Dosage: 250 MG, QD (2 TABLETS DAILY)
     Route: 048
  2. VYMADA [Suspect]
     Active Substance: SACUBITRIL\VALSARTAN
     Indication: CARDIAC FAILURE
     Dosage: 50 MG, QD
     Route: 065
     Dates: start: 202003

REACTIONS (3)
  - Incorrect dose administered [Unknown]
  - Respiratory arrest [Fatal]
  - Malaise [Unknown]

NARRATIVE: CASE EVENT DATE: 20200811
